FAERS Safety Report 4942742-5 (Version None)
Quarter: 2006Q1

REPORT INFORMATION
  Report Type: 
  Country: None (occurrence: None)
  Receive Date: 20060223
  Receipt Date: 20060215
  Transmission Date: 20060701
  Serious: No
  Sender: FDA-Public Use
  Company Number: 200609840

PATIENT
  Age: 3 Year
  Sex: Male
  Weight: 15 kg

DRUGS (1)
  1. SANDOGLOBULIN 6G (IMMUNOGLOBULIN HUMAN NORMAL) (ZLB BEHRING) [Suspect]
     Indication: IDIOPATHIC THROMBOCYTOPENIC PURPURA
     Dosage: 12 G DAILY IV
     Route: 042
     Dates: start: 20060108, end: 20060109

REACTIONS (3)
  - BODY TEMPERATURE INCREASED [None]
  - CHILLS [None]
  - HALLUCINATIONS, MIXED [None]
